FAERS Safety Report 8967233 (Version 1)
Quarter: 2012Q4

REPORT INFORMATION
  Report Type: 
  Country: US (occurrence: US)
  Receive Date: 20121214
  Receipt Date: 20121214
  Transmission Date: 20130627
  Serious: No
  Sender: FDA-Public Use
  Company Number: US-GLAXOSMITHKLINE-A0964034A

PATIENT
  Age: 51 Year
  Sex: Female

DRUGS (2)
  1. FLONASE [Suspect]
     Indication: EAR CONGESTION
     Dosage: 2SPR Twice per day
     Route: 045
     Dates: start: 20120127, end: 20120130
  2. NO CONCURRENT MEDICATION [Concomitant]

REACTIONS (5)
  - Headache [Recovering/Resolving]
  - Nausea [Recovering/Resolving]
  - Nasal dryness [Recovering/Resolving]
  - Burning sensation [Recovering/Resolving]
  - Feeling hot [Recovering/Resolving]
